FAERS Safety Report 11345081 (Version 1)
Quarter: 2015Q3

REPORT INFORMATION
  Report Type: Spontaneous
  Country: US (occurrence: US)
  Receive Date: 20150806
  Receipt Date: 20150806
  Transmission Date: 20151125
  Serious: No
  Sender: FDA-Public Use
  Company Number: US-TEVA-584468ACC

PATIENT
  Age: 31 Year
  Sex: Female
  Weight: 63.56 kg

DRUGS (3)
  1. PARAGARD T 380A [Suspect]
     Active Substance: COPPER
     Indication: CONTRACEPTION
     Route: 015
     Dates: start: 20150601, end: 20150729
  2. PRENATAL VITAMINS [Concomitant]
     Active Substance: VITAMINS
     Indication: SUPPLEMENTATION THERAPY
     Route: 065
  3. SANGUINARIA [Concomitant]
     Indication: NEURALGIA
     Route: 065

REACTIONS (5)
  - Back pain [Recovered/Resolved]
  - Menstruation delayed [Not Recovered/Not Resolved]
  - Abdominal pain lower [Recovered/Resolved]
  - Device expulsion [Recovered/Resolved]
  - Menorrhagia [Recovered/Resolved]

NARRATIVE: CASE EVENT DATE: 201506
